FAERS Safety Report 11153259 (Version 2)
Quarter: 2015Q2

REPORT INFORMATION
  Report Type: Spontaneous
  Country: CA (occurrence: CA)
  Receive Date: 20150601
  Receipt Date: 20150605
  Transmission Date: 20150821
  Serious: Yes (Death)
  Sender: FDA-Public Use
  Company Number: CA-009507513-1505CAN015642

PATIENT
  Age: 48 Year
  Sex: Male

DRUGS (1)
  1. TEMODAL [Suspect]
     Active Substance: TEMOZOLOMIDE
     Indication: MALIGNANT MELANOMA
     Dosage: 375 MG, DAILY FOR 5 DAYS PER CYCLE
     Route: 048
     Dates: start: 20150312, end: 2015

REACTIONS (2)
  - Drug administration error [Unknown]
  - Death [Fatal]

NARRATIVE: CASE EVENT DATE: 2015
